FAERS Safety Report 20820634 (Version 5)
Quarter: 2022Q2

REPORT INFORMATION
  Report Type: Report from Study
  Country: US (occurrence: US)
  Receive Date: 20220512
  Receipt Date: 20220616
  Transmission Date: 20220721
  Serious: Yes (Other)
  Sender: FDA-Public Use
  Company Number: US-NOVARTISTESTPH-NVSC2022US108015

PATIENT
  Sex: Male
  Weight: 80 kg

DRUGS (4)
  1. ENTRESTO [Suspect]
     Active Substance: SACUBITRIL\VALSARTAN
     Indication: Cardiac failure
     Dosage: 0.5 MG, BID, (1/2 TABLET IN THE MORNING, AND 1/2 TABLET IN THE AFTERNOON, 97/103 MG)
     Route: 048
     Dates: start: 20220328
  2. SPIRONOLACTONE [Concomitant]
     Active Substance: SPIRONOLACTONE
     Indication: Product used for unknown indication
     Dosage: 1 DOSAGE FORM, QD, (25 MG)
     Route: 048
     Dates: start: 20220204
  3. TOPROL XL [Concomitant]
     Active Substance: METOPROLOL SUCCINATE
     Indication: Cardiac failure
     Dosage: 0.5 MG, (25 MG)
     Route: 065
     Dates: start: 20220306
  4. DAPAGLIFLOZIN [Concomitant]
     Active Substance: DAPAGLIFLOZIN
     Indication: Cardiac failure
     Dosage: 1 DOSAGE FORM
     Route: 065
     Dates: start: 20220426

REACTIONS (3)
  - Cardiac disorder [Unknown]
  - Illness [Unknown]
  - Wrong technique in product usage process [Unknown]
